FAERS Safety Report 4395265-9 (Version None)
Quarter: 2004Q2

REPORT INFORMATION
  Report Type: 
  Country: None (occurrence: None)
  Receive Date: 20040621
  Receipt Date: 20020814
  Transmission Date: 20050107
  Serious: Yes (Other)
  Sender: FDA-Public Use
  Company Number: KII-2002-0007661

PATIENT
  Age: 40 Year
  Sex: Male

DRUGS (2)
  1. OXYCONTIN [Suspect]
     Indication: PAIN
     Dosage: 20 MG, BID,
  2. PERCOCET [Suspect]
     Indication: PAIN
     Dosage: 2 TABLET, QID PRN,

REACTIONS (2)
  - DRUG ABUSER [None]
  - DRUG WITHDRAWAL SYNDROME [None]
